FAERS Safety Report 4397929-X (Version None)
Quarter: 2004Q3

REPORT INFORMATION
  Report Type: 
  Country: None (occurrence: None)
  Receive Date: 20040713
  Receipt Date: 20040628
  Transmission Date: 20050211
  Serious: Yes (Hospitalization, Other)
  Sender: FDA-Public Use
  Company Number: 175018

PATIENT
  Age: 51 Year
  Sex: Female

DRUGS (1)
  1. AVONEX [Suspect]
     Indication: MULTIPLE SCLEROSIS
     Dosage: 30 MCG QW IM
     Route: 030
     Dates: start: 19970101

REACTIONS (6)
  - FALL [None]
  - FATIGUE [None]
  - LOWER LIMB FRACTURE [None]
  - MULTIPLE SCLEROSIS [None]
  - PIGMENTED NAEVUS [None]
  - WHEELCHAIR USER [None]
